FAERS Safety Report 9772552 (Version 1)
Quarter: 2013Q4

REPORT INFORMATION
  Report Type: Spontaneous
  Country: US (occurrence: US)
  Receive Date: 20131219
  Receipt Date: 20131219
  Transmission Date: 20140711
  Serious: Yes (Hospitalization)
  Sender: FDA-Public Use
  Company Number: US-BAYER-2013-153384

PATIENT
  Age: 21 Year
  Sex: Female
  Weight: 61.68 kg

DRUGS (1)
  1. YASMIN [Suspect]

REACTIONS (3)
  - Subclavian vein thrombosis [None]
  - Deep vein thrombosis [None]
  - Axillary vein thrombosis [None]
